FAERS Safety Report 13251427 (Version 1)
Quarter: 2017Q1

REPORT INFORMATION
  Report Type: Spontaneous
  Country: EC (occurrence: EC)
  Receive Date: 20170220
  Receipt Date: 20170220
  Transmission Date: 20170428
  Serious: Yes (Other)
  Sender: FDA-Public Use
  Company Number: EC-ROCHE-1895242

PATIENT
  Age: 6 Week

DRUGS (1)
  1. LUCENTIS [Suspect]
     Active Substance: RANIBIZUMAB
     Indication: RETINOPATHY OF PREMATURITY
     Route: 031
     Dates: start: 20140711

REACTIONS (4)
  - Cataract [Unknown]
  - Corneal opacity [Unknown]
  - Product use issue [Unknown]
  - Drug administered to patient of inappropriate age [Unknown]

NARRATIVE: CASE EVENT DATE: 20140711
